FAERS Safety Report 5301617-2 (Version None)
Quarter: 2007Q2

REPORT INFORMATION
  Report Type: 
  Country: None (occurrence: None)
  Receive Date: 20070419
  Receipt Date: 20070411
  Transmission Date: 20071010
  Serious: Yes (Other)
  Sender: FDA-Public Use
  Company Number: GB-JNJFOC-20070402753

PATIENT
  Sex: Female
  Weight: 73 kg

DRUGS (9)
  1. REMICADE [Suspect]
     Indication: SERONEGATIVE ARTHRITIS
     Route: 042
  2. METHOTREXATE [Concomitant]
  3. PREDNISOLONE [Concomitant]
  4. CO-AMILOFRUSE [Concomitant]
  5. CO-DYDRAMOL [Concomitant]
  6. FOLIC ACID [Concomitant]
  7. LANSOPRAZOLE [Concomitant]
  8. LEVOTHYROXINE SODIUM [Concomitant]
  9. DIDRONEL [Concomitant]

REACTIONS (1)
  - BREAST CANCER [None]
